FAERS Safety Report 7470585-X (Version None)
Quarter: 2011Q2

REPORT INFORMATION
  Report Type: 
  Country: None (occurrence: None)
  Receive Date: 20110510
  Receipt Date: 20110509
  Transmission Date: 20111010
  Serious: Yes (Hospitalization)
  Sender: FDA-Public Use
  Company Number: NL-ABBOTT-10P-114-0685829-00

PATIENT
  Sex: Female
  Weight: 64 kg

DRUGS (4)
  1. BUDESONIDE [Concomitant]
     Indication: CROHN'S DISEASE
     Route: 048
     Dates: start: 20101110
  2. HUMIRA [Suspect]
     Route: 058
     Dates: start: 20110504
  3. HUMIRA [Suspect]
     Indication: CROHN'S DISEASE
     Route: 058
     Dates: start: 20100601, end: 20110302
  4. ETHINYLESTRADIOL/DESOGESTREL [Concomitant]
     Indication: CONTRACEPTION
     Route: 048

REACTIONS (3)
  - HOSPITALISATION [None]
  - PRURITUS GENERALISED [None]
  - INJECTION SITE RASH [None]
